FAERS Safety Report 9411127 (Version 2)
Quarter: 2013Q3

REPORT INFORMATION
  Report Type: Spontaneous
  Country: US (occurrence: US)
  Receive Date: 20130721
  Receipt Date: 20130726
  Transmission Date: 20140515
  Serious: Yes (Other)
  Sender: FDA-Public Use
  Company Number: PHHY2013US075330

PATIENT
  Sex: Female
  Weight: 72.56 kg

DRUGS (12)
  1. GILENYA [Suspect]
     Indication: RELAPSING-REMITTING MULTIPLE SCLEROSIS
     Dosage: 0.5 MG, QD
     Route: 048
  2. TYSABRI [Suspect]
  3. ZYRTEC [Concomitant]
     Dosage: 5 MG, QD
  4. VITAMIN E [Concomitant]
     Dosage: 400 U, QD
     Dates: end: 20130613
  5. AMBIEN [Concomitant]
     Dosage: 5 MG, UNK
  6. B-COMPLEX [Concomitant]
  7. PROZAC [Concomitant]
     Dosage: 20 MG, QD
  8. MULTI-VIT [Concomitant]
  9. FISH OIL [Concomitant]
     Dosage: 1000 MG, QD
  10. ESTRING [Concomitant]
     Dosage: 2 MG, UNK
  11. GINKO BILOBA [Concomitant]
  12. CALCIUM [Concomitant]

REACTIONS (5)
  - Retinal haemorrhage [Recovered/Resolved]
  - Visual field defect [Recovering/Resolving]
  - Visual acuity reduced [Recovering/Resolving]
  - Retinal exudates [Recovered/Resolved]
  - Maculopathy [Recovering/Resolving]
